FAERS Safety Report 7433647-9 (Version None)
Quarter: 2011Q2

REPORT INFORMATION
  Report Type: 
  Country: None (occurrence: None)
  Receive Date: 20110422
  Receipt Date: 20110413
  Transmission Date: 20111010
  Serious: Yes (Hospitalization, Disabling, Other)
  Sender: FDA-Public Use
  Company Number: US-MERCK-0705USA01437

PATIENT
  Age: 81 Year
  Sex: Male
  Weight: 62 kg

DRUGS (15)
  1. FOSAMAX [Suspect]
     Route: 048
     Dates: start: 20041205, end: 20060101
  2. FOSAMAX [Suspect]
     Route: 048
     Dates: start: 20041101, end: 20060619
  3. FOSAMAX [Suspect]
     Indication: OSTEOPENIA
     Route: 048
  4. [THERAPY UNSPECIFIED] [Concomitant]
     Indication: HYPERTENSION
     Route: 065
     Dates: start: 19850101
  5. VICODIN [Concomitant]
     Indication: PAIN
     Route: 065
     Dates: start: 19980101
  6. PEPCID [Concomitant]
     Indication: GASTROOESOPHAGEAL REFLUX DISEASE
     Route: 065
     Dates: start: 19980101
  7. KLONOPIN [Concomitant]
     Indication: CONVULSION
     Route: 065
     Dates: start: 20020101, end: 20060101
  8. ANTIVERT [Concomitant]
     Indication: PROPHYLAXIS OF NAUSEA AND VOMITING
     Route: 065
     Dates: start: 19950101
  9. FOSAMAX [Suspect]
     Indication: OSTEOPOROSIS
     Route: 048
  10. NITROSTAT [Concomitant]
     Indication: ANGINA PECTORIS
     Route: 065
     Dates: start: 19980101
  11. ANTIVERT [Concomitant]
     Indication: DIZZINESS
     Route: 065
     Dates: start: 19950101
  12. FOSAMAX [Suspect]
     Route: 048
     Dates: start: 20041205, end: 20060101
  13. FOSAMAX [Suspect]
     Route: 048
     Dates: start: 20041101, end: 20060619
  14. TAGAMET [Concomitant]
     Indication: ULCER
     Route: 065
     Dates: start: 19980101
  15. ALDACTONE [Concomitant]
     Indication: HYPERTENSION
     Route: 065
     Dates: start: 19850101

REACTIONS (56)
  - CHRONIC OBSTRUCTIVE PULMONARY DISEASE [None]
  - OESOPHAGEAL FOOD IMPACTION [None]
  - OESOPHAGEAL STENOSIS [None]
  - KYPHOSIS [None]
  - TEMPOROMANDIBULAR JOINT SYNDROME [None]
  - PAIN [None]
  - OESOPHAGEAL RUPTURE [None]
  - DERMATITIS [None]
  - OSTEOMYELITIS [None]
  - FALL [None]
  - DYSPHAGIA [None]
  - MACULAR DEGENERATION [None]
  - ASTHENIA [None]
  - CELLULITIS [None]
  - DEPRESSION [None]
  - GAIT DISTURBANCE [None]
  - VENOUS INSUFFICIENCY [None]
  - EYELID PTOSIS [None]
  - ASPIRATION [None]
  - CARDIAC DISORDER [None]
  - URINARY TRACT INFECTION [None]
  - GASTROOESOPHAGEAL REFLUX DISEASE [None]
  - STASIS DERMATITIS [None]
  - ONYCHOMYCOSIS [None]
  - OESOPHAGEAL ULCER [None]
  - OEDEMA PERIPHERAL [None]
  - BIPOLAR DISORDER [None]
  - PNEUMONIA [None]
  - EXCORIATION [None]
  - GYNAECOMASTIA [None]
  - CATARACT [None]
  - REFLUX OESOPHAGITIS [None]
  - OESOPHAGEAL DISORDER [None]
  - BLINDNESS UNILATERAL [None]
  - INTERSTITIAL LUNG DISEASE [None]
  - INGUINAL HERNIA [None]
  - SKIN ULCER [None]
  - TOOTH LOSS [None]
  - PRESYNCOPE [None]
  - MALAISE [None]
  - BACK PAIN [None]
  - ANAL STENOSIS [None]
  - ATRIAL FIBRILLATION [None]
  - HUMERUS FRACTURE [None]
  - SKIN DYSTROPHY [None]
  - KYPHOSCOLIOSIS [None]
  - INFECTION [None]
  - ECZEMA [None]
  - WEIGHT DECREASED [None]
  - VARICOSE VEIN [None]
  - SPINAL COMPRESSION FRACTURE [None]
  - ACQUIRED OESOPHAGEAL WEB [None]
  - MYOPATHY [None]
  - ESSENTIAL HYPERTENSION [None]
  - PANIC DISORDER WITH AGORAPHOBIA [None]
  - ARRHYTHMIA [None]
